FAERS Safety Report 5420380-8 (Version None)
Quarter: 2007Q3

REPORT INFORMATION
  Report Type: 
  Country: None (occurrence: None)
  Receive Date: 20070816
  Receipt Date: 20070806
  Transmission Date: 20080115
  Serious: Yes (Hospitalization)
  Sender: FDA-Public Use
  Company Number: CERZ-11832

PATIENT
  Age: 28 Week
  Sex: Female
  Weight: 113 kg

DRUGS (5)
  1. CEREZYME [Suspect]
     Indication: GAUCHER'S DISEASE
     Dosage: 3400 UNITS Q2WKS IV
     Route: 042
  2. CEREZYME [Suspect]
     Indication: GAUCHER'S DISEASE
     Dosage: 60 U/KG Q2WKS IV
     Route: 042
     Dates: start: 20041201
  3. CEREZYME [Suspect]
     Indication: GAUCHER'S DISEASE
     Dosage: 60 U/KG QWK IV
     Route: 042
     Dates: start: 19970501, end: 19990101
  4. CEREZYME [Suspect]
     Indication: GAUCHER'S DISEASE
     Dosage: 60 U/KG Q2WKS IV
     Route: 042
     Dates: start: 19970201, end: 19970501
  5. CEREZYME [Suspect]
     Indication: GAUCHER'S DISEASE
     Dates: start: 19960905, end: 19970201

REACTIONS (3)
  - INHIBITING ANTIBODIES [None]
  - MENTAL DISORDER [None]
  - TREATMENT NONCOMPLIANCE [None]
